FAERS Safety Report 8280266-0 (Version None)
Quarter: 2012Q2

REPORT INFORMATION
  Report Type: 
  Country: None (occurrence: None)
  Receive Date: 20120412
  Receipt Date: 20111101
  Transmission Date: 20120825
  Serious: No
  Sender: FDA-Public Use
  Company Number: US-ASTRAZENECA-2011SE59311

PATIENT
  Age: 66 Year
  Sex: Male

DRUGS (2)
  1. NEXIUM [Suspect]
     Route: 048
  2. CRESTOR [Concomitant]

REACTIONS (9)
  - ARTHRITIS [None]
  - DYSPEPSIA [None]
  - NECK PAIN [None]
  - CHEST PAIN [None]
  - HYPOKINESIA [None]
  - GASTROOESOPHAGEAL REFLUX DISEASE [None]
  - APHAGIA [None]
  - MUSCLE SPASMS [None]
  - DRUG DOSE OMISSION [None]
